FAERS Safety Report 19204705 (Version 9)
Quarter: 2022Q4

REPORT INFORMATION
  Report Type: Spontaneous
  Country: GB (occurrence: GB)
  Receive Date: 20210503
  Receipt Date: 20221221
  Transmission Date: 20230113
  Serious: Yes (Other)
  Sender: FDA-Public Use
  Company Number: GB-DRREDDYS-GER/UKI/12/0024207

PATIENT
  Age: 66 Year
  Sex: Male
  Weight: 90 kg

DRUGS (25)
  1. DAPTOMYCIN [Suspect]
     Active Substance: DAPTOMYCIN
     Indication: Arthropathy
     Dosage: 150 MG,QD, CUMULATIVE DOSE TO FIRST REACTION 450 MG; IN COMBI LEVOFLOXACIN 500 MG TWICE DAILY
     Route: 042
     Dates: start: 20120110, end: 20120113
  2. DAPTOMYCIN [Suspect]
     Active Substance: DAPTOMYCIN
     Indication: Arthropathy
     Dosage: 150 MG; CUMULATIVE DOSE TO FIRST REACTION 450 MG; IN COMBINATION WITH LEVOFLOXACIN 500 MG TWICE DAIL
     Route: 042
  3. DAPTOMYCIN [Suspect]
     Active Substance: DAPTOMYCIN
     Indication: Knee operation
  4. LEVOFLOXACIN [Suspect]
     Active Substance: LEVOFLOXACIN
     Indication: Polymyalgia rheumatica
     Dosage: 1000 MILLIGRAM, QD, 500 MG,BID
     Route: 065
  5. LEVOFLOXACIN [Suspect]
     Active Substance: LEVOFLOXACIN
     Indication: Arthropathy
     Dosage: UNK MILLIGRAM, BID
     Route: 065
  6. LEVOFLOXACIN [Suspect]
     Active Substance: LEVOFLOXACIN
  7. LEVOFLOXACIN [Suspect]
     Active Substance: LEVOFLOXACIN
     Route: 065
  8. LEVOFLOXACIN [Suspect]
     Active Substance: LEVOFLOXACIN
     Dosage: 1000 MILLIGRAM, QD
  9. AMLODIPINE [Concomitant]
     Active Substance: AMLODIPINE BESYLATE
     Indication: Product used for unknown indication
     Dosage: 5 MILLIGRAM, LONG TERM
  10. AMLODIPINE [Concomitant]
     Active Substance: AMLODIPINE BESYLATE
  11. CODEINE [Concomitant]
     Active Substance: CODEINE
     Indication: Product used for unknown indication
     Dates: start: 20120110
  12. CODEINE [Concomitant]
     Active Substance: CODEINE
     Dates: start: 20120110
  13. CODEINE [Concomitant]
     Active Substance: CODEINE
  14. ENOXAPARIN [Concomitant]
     Active Substance: ENOXAPARIN
     Indication: Product used for unknown indication
     Dates: start: 20120110
  15. ENOXAPARIN [Concomitant]
     Active Substance: ENOXAPARIN
  16. LISINOPRIL [Concomitant]
     Active Substance: LISINOPRIL
     Indication: Product used for unknown indication
     Dosage: 20 MILLIGRAM, LONG TERM
  17. LISINOPRIL [Concomitant]
     Active Substance: LISINOPRIL
  18. OMEPRAZOLE [Concomitant]
     Active Substance: OMEPRAZOLE
     Indication: Product used for unknown indication
  19. PREDNISOLONE [Concomitant]
     Active Substance: PREDNISOLONE
     Indication: Polymyalgia rheumatica
     Dosage: 5 MILLIGRAM, LONG TERM
     Route: 048
  20. PREDNISOLONE [Concomitant]
     Active Substance: PREDNISOLONE
  21. ACETAMINOPHEN [Concomitant]
     Active Substance: ACETAMINOPHEN
     Indication: Product used for unknown indication
  22. ACETAMINOPHEN [Concomitant]
     Active Substance: ACETAMINOPHEN
     Dosage: 1 G,UNK LONG TERM
  23. RIVAROXABAN [Concomitant]
     Active Substance: RIVAROXABAN
     Indication: Product used for unknown indication
  24. ACETAMINOPHEN [Concomitant]
     Active Substance: ACETAMINOPHEN
     Indication: Product used for unknown indication
  25. ACETAMINOPHEN [Concomitant]
     Active Substance: ACETAMINOPHEN
     Dosage: 1 GRAM, LONG TERM

REACTIONS (7)
  - C-reactive protein increased [Not Recovered/Not Resolved]
  - Lower respiratory tract infection [Unknown]
  - Lower respiratory tract infection [Unknown]
  - Pneumonia [Not Recovered/Not Resolved]
  - Dyspnoea [Recovered/Resolved]
  - Pyrexia [Not Recovered/Not Resolved]
  - Off label use [Unknown]

NARRATIVE: CASE EVENT DATE: 20120113
